FAERS Safety Report 15713652 (Version 3)
Quarter: 2019Q2

REPORT INFORMATION
  Report Type: Spontaneous
  Country: US (occurrence: US)
  Receive Date: 20181212
  Receipt Date: 20190405
  Transmission Date: 20190711
  Serious: Yes (Hospitalization, Other)
  Sender: FDA-Public Use
  Company Number: US-TEVA-2018-US-984664

PATIENT
  Age: 73 Year
  Sex: Male

DRUGS (6)
  1. PREDNISOLONE. [Concomitant]
     Active Substance: PREDNISOLONE
  2. IMATINIB MESYLATE TEVA [Suspect]
     Active Substance: IMATINIB MESYLATE
     Route: 065
  3. OMEPRAZOLE. [Concomitant]
     Active Substance: OMEPRAZOLE
     Route: 065
  4. TAMSULOSIN [Concomitant]
     Active Substance: TAMSULOSIN
     Route: 065
  5. ACETAMINOPHEN. [Concomitant]
     Active Substance: ACETAMINOPHEN
  6. IMATINIB MESYLATE TEVA [Suspect]
     Active Substance: IMATINIB MESYLATE
     Indication: GASTROINTESTINAL STROMAL TUMOUR
     Dosage: 400 MILLIGRAM DAILY;
     Dates: start: 201607, end: 201812

REACTIONS (8)
  - Diverticulitis [Recovered/Resolved]
  - Cyst [Recovered/Resolved]
  - Night sweats [Recovered/Resolved]
  - Product substitution issue [Unknown]
  - Diverticulum [Recovered/Resolved]
  - Product use in unapproved indication [Unknown]
  - Melanocytic naevus [Recovered/Resolved]
  - Diplopia [Recovered/Resolved]

NARRATIVE: CASE EVENT DATE: 20181130
